FAERS Safety Report 25774740 (Version 1)
Quarter: 2025Q3

REPORT INFORMATION
  Report Type: Spontaneous
  Country: US (occurrence: US)
  Receive Date: 20250908
  Receipt Date: 20250908
  Transmission Date: 20251020
  Serious: Yes (Life-Threatening, Other)
  Sender: BRACCO
  Company Number: US-BRACCO-2025US06055

PATIENT
  Age: 80 Year
  Sex: Male

DRUGS (3)
  1. LUMASON [Suspect]
     Active Substance: SULFUR HEXAFLUORIDE
     Indication: Echocardiogram
     Route: 042
     Dates: start: 20250831, end: 20250831
  2. LUMASON [Suspect]
     Active Substance: SULFUR HEXAFLUORIDE
     Indication: Echocardiogram
     Route: 042
     Dates: start: 20250831, end: 20250831
  3. LUMASON [Suspect]
     Active Substance: SULFUR HEXAFLUORIDE
     Indication: Echocardiogram
     Route: 042
     Dates: start: 20250831, end: 20250831

REACTIONS (3)
  - Cardio-respiratory arrest [Recovering/Resolving]
  - Unresponsive to stimuli [Recovering/Resolving]
  - Dyspnoea [Recovering/Resolving]

NARRATIVE: CASE EVENT DATE: 20250831
